FAERS Safety Report 7743051-1 (Version None)
Quarter: 2011Q3

REPORT INFORMATION
  Report Type: 
  Country: None (occurrence: None)
  Receive Date: 20110901
  Receipt Date: 20100803
  Transmission Date: 20111222
  Serious: Yes (Hospitalization)
  Sender: FDA-Public Use
  Company Number: WAES 0907USA00672

PATIENT
  Age: 65 Year
  Sex: Female
  Weight: 53.978 kg

DRUGS (36)
  1. CAP VORINOSTAT UNK [Suspect]
     Indication: MULTIPLE MYELOMA
     Dosage: 400 MG/DAILY/PO, 300 MG/DAILY/PO, 300 MG/DAILY/PO, 300 MG/DAILY/PO
     Route: 048
     Dates: start: 20090624, end: 20090630
  2. CAP VORINOSTAT UNK [Suspect]
     Indication: MULTIPLE MYELOMA
     Dosage: 400 MG/DAILY/PO, 300 MG/DAILY/PO, 300 MG/DAILY/PO, 300 MG/DAILY/PO
     Route: 048
     Dates: start: 20090604, end: 20090610
  3. CAP VORINOSTAT UNK [Suspect]
     Indication: MULTIPLE MYELOMA
     Dosage: 400 MG/DAILY/PO, 300 MG/DAILY/PO, 300 MG/DAILY/PO, 300 MG/DAILY/PO
     Route: 048
     Dates: start: 20090720, end: 20090805
  4. CAP VORINOSTAT UNK [Suspect]
     Indication: MULTIPLE MYELOMA
     Dosage: 400 MG/DAILY/PO, 300 MG/DAILY/PO, 300 MG/DAILY/PO, 300 MG/DAILY/PO
     Route: 048
     Dates: start: 20090521, end: 20090527
  5. CAP VORINOSTAT UNK [Suspect]
     Indication: MULTIPLE MYELOMA
     Dosage: 400 MG/DAILY/PO, 300 MG/DAILY/PO, 300 MG/DAILY/PO, 300 MG/DAILY/PO
     Route: 048
     Dates: start: 20090817, end: 20090831
  6. NSI ALPHA LIPOIC ACID [Concomitant]
  7. ASPIRIN [Concomitant]
  8. ATIVAN [Concomitant]
  9. NEUROTONIN [Concomitant]
  10. VITAMINS (UNSPECIFIED) [Concomitant]
  11. IMODIUM MULTI-SYMPTOM RELIEF [Concomitant]
  12. SEROQUEL [Concomitant]
  13. ACYCLOVIR [Concomitant]
  14. LOPERAMIDE HCL [Concomitant]
  15. LENALIDOMIDE [Suspect]
     Indication: MULTIPLE MYELOMA
     Dosage: 25 MG/DAILY/PO, 20 MG/DAILY/PO, 15 MG/DAILY/PO, 15 MG/DAILY/PO
     Route: 048
     Dates: start: 20090624, end: 20090701
  16. LENALIDOMIDE [Suspect]
     Indication: MULTIPLE MYELOMA
     Dosage: 25 MG/DAILY/PO, 20 MG/DAILY/PO, 15 MG/DAILY/PO, 15 MG/DAILY/PO
     Route: 048
     Dates: start: 20090521, end: 20090610
  17. LENALIDOMIDE [Suspect]
     Indication: MULTIPLE MYELOMA
     Dosage: 25 MG/DAILY/PO, 20 MG/DAILY/PO, 15 MG/DAILY/PO, 15 MG/DAILY/PO
     Route: 048
     Dates: start: 20090720, end: 20090809
  18. LENALIDOMIDE [Suspect]
     Indication: MULTIPLE MYELOMA
     Dosage: 25 MG/DAILY/PO, 20 MG/DAILY/PO, 15 MG/DAILY/PO, 15 MG/DAILY/PO
     Route: 048
     Dates: start: 20090817, end: 20090831
  19. CULTURELLE [Concomitant]
  20. L-CARNITINE [Concomitant]
  21. FOLIC ACID [Concomitant]
  22. DEXAMETHASONE [Suspect]
     Indication: MULTIPLE MYELOMA
     Dosage: 40 MG/WKY/PO, 40 MG/WKY/PO, 40 MG/WKY/PO, 40 MG/WKY/PO
     Route: 048
     Dates: start: 20090720, end: 20090824
  23. DEXAMETHASONE [Suspect]
     Indication: MULTIPLE MYELOMA
     Dosage: 40 MG/WKY/PO, 40 MG/WKY/PO, 40 MG/WKY/PO, 40 MG/WKY/PO
     Route: 048
     Dates: start: 20090624, end: 20090701
  24. DEXAMETHASONE [Suspect]
     Indication: MULTIPLE MYELOMA
     Dosage: 40 MG/WKY/PO, 40 MG/WKY/PO, 40 MG/WKY/PO, 40 MG/WKY/PO
     Route: 048
     Dates: start: 20090521, end: 20090611
  25. DEXAMETHASONE [Suspect]
     Indication: MULTIPLE MYELOMA
     Dosage: 40 MG/WKY/PO, 40 MG/WKY/PO, 40 MG/WKY/PO, 40 MG/WKY/PO
     Route: 048
     Dates: start: 20090907, end: 20090907
  26. ZOFRAN [Concomitant]
  27. METOPROLOL TARTRATE [Concomitant]
  28. VITAMIN B (UNSPECIFIED) [Concomitant]
  29. PRILOSEC [Concomitant]
  30. TRIMETHOBENZAMIDE HYDROCHLORIDE [Concomitant]
  31. BENEFIBER [Concomitant]
  32. TIGAN [Concomitant]
  33. ZOMETA [Concomitant]
  34. BLOOD CELLS, RED [Concomitant]
  35. LEVOCARNITINE [Concomitant]
  36. SIMVASTATIN [Concomitant]

REACTIONS (7)
  - DEHYDRATION [None]
  - DISEASE PROGRESSION [None]
  - SUPRAVENTRICULAR EXTRASYSTOLES [None]
  - ELECTROCARDIOGRAM ST SEGMENT ABNORMAL [None]
  - EXTRASYSTOLES [None]
  - SINUS BRADYCARDIA [None]
  - BUNDLE BRANCH BLOCK RIGHT [None]
